FAERS Safety Report 9306138 (Version 1)
Quarter: 2013Q2

REPORT INFORMATION
  Report Type: Spontaneous
  Country: JP (occurrence: JP)
  Receive Date: 20130523
  Receipt Date: 20130523
  Transmission Date: 20140414
  Serious: Yes (Hospitalization)
  Sender: FDA-Public Use
  Company Number: JP-TEVA-406333ISR

PATIENT
  Age: 52 Year
  Sex: Female
  Weight: 55.3 kg

DRUGS (2)
  1. CISPLATIN [Suspect]
     Indication: OESOPHAGEAL CARCINOMA
     Dosage: 80 MG/M2 DAILY; ON DAY 1
     Route: 040
  2. FLUOROURACIL [Suspect]
     Indication: OESOPHAGEAL CARCINOMA
     Dosage: 800 MG/M2 DAILY; ON DAYS 1-5

REACTIONS (5)
  - Hyponatraemia [Recovering/Resolving]
  - Renal salt-wasting syndrome [Recovering/Resolving]
  - Brain oedema [Recovering/Resolving]
  - Nervous system disorder [Recovering/Resolving]
  - Nausea [Unknown]
